FAERS Safety Report 6871744-7 (Version None)
Quarter: 2010Q3

REPORT INFORMATION
  Report Type: 
  Country: None (occurrence: None)
  Receive Date: 20100723
  Receipt Date: 20100716
  Transmission Date: 20110219
  Serious: Yes (Hospitalization)
  Sender: FDA-Public Use
  Company Number: A0871720A

PATIENT
  Age: 64 Year
  Sex: Male
  Weight: 53.3 kg

DRUGS (1)
  1. PAZOPANIB [Suspect]
     Indication: MALIGNANT NEOPLASM PROGRESSION
     Dosage: 800MG PER DAY
     Route: 048
     Dates: start: 20100511

REACTIONS (4)
  - ABDOMINAL PAIN [None]
  - COLITIS [None]
  - DIARRHOEA [None]
  - LACTIC ACIDOSIS [None]
